FAERS Safety Report 7439980-9 (Version None)
Quarter: 2011Q2

REPORT INFORMATION
  Report Type: 
  Country: None (occurrence: None)
  Receive Date: 20110427
  Receipt Date: 20110414
  Transmission Date: 20111010
  Serious: Yes (Hospitalization)
  Sender: FDA-Public Use
  Company Number: PHHY2011FR33405

PATIENT
  Sex: Male

DRUGS (8)
  1. LANREOTIDE [Suspect]
     Dates: start: 20001025, end: 20030201
  2. SOMAVERT [Concomitant]
     Indication: ACROMEGALY
     Dosage: 20 MG, QD
     Dates: start: 20060904
  3. LANREOTIDE [Suspect]
     Dates: start: 19951103, end: 19960626
  4. GLUCOPHAGE [Concomitant]
     Indication: TYPE 2 DIABETES MELLITUS
     Dates: start: 20050101
  5. SANDOSTATIN LAR [Suspect]
     Route: 030
     Dates: start: 20030201, end: 20030312
  6. MOPRAL [Concomitant]
     Indication: OESOPHAGITIS
     Dates: start: 20060101
  7. COAPROVEL [Concomitant]
     Indication: HYPERTENSION
     Dates: start: 20060101
  8. LANREOTIDE [Suspect]
     Dates: start: 20000628, end: 20000926

REACTIONS (2)
  - CHOLECYSTITIS INFECTIVE [None]
  - CHEMICAL PERITONITIS [None]
